FAERS Safety Report 8113907-9 (Version None)
Quarter: 2012Q1

REPORT INFORMATION
  Report Type: 
  Country: None (occurrence: None)
  Receive Date: 20120203
  Receipt Date: 20120124
  Transmission Date: 20120608
  Serious: Yes (Other)
  Sender: FDA-Public Use
  Company Number: CA-ROCHE-1034146

PATIENT
  Sex: Female

DRUGS (7)
  1. PATANOL [Concomitant]
  2. SINGULAIR [Concomitant]
  3. ANTIHISTAMINICS [Concomitant]
  4. SYMBICORT [Concomitant]
  5. BRICANYL [Concomitant]
  6. FLUTICASONE FUROATE [Concomitant]
  7. XOLAIR [Suspect]
     Indication: ASTHMA
     Route: 058
     Dates: start: 20120118

REACTIONS (10)
  - BLOOD PRESSURE INCREASED [None]
  - HYPOAESTHESIA ORAL [None]
  - LIP SWELLING [None]
  - EAR DISORDER [None]
  - HEART RATE INCREASED [None]
  - PARAESTHESIA [None]
  - HYPERSENSITIVITY [None]
  - FATIGUE [None]
  - HEADACHE [None]
  - NAUSEA [None]
